FAERS Safety Report 4615932-9 (Version None)
Quarter: 2005Q1

REPORT INFORMATION
  Report Type: 
  Country: None (occurrence: None)
  Receive Date: 20050318
  Receipt Date: 20050308
  Transmission Date: 20050727
  Serious: Yes (Hospitalization)
  Sender: FDA-Public Use
  Company Number: 2005041916

PATIENT
  Age: 31 Year
  Sex: Female

DRUGS (1)
  1. DALTEPARIN               (DALTEPARIN) [Suspect]
     Indication: THROMBOSIS PROPHYLAXIS
     Dosage: DAILY INERVAL: DAILY, SUBCUTANEOUS
     Route: 058
     Dates: start: 20050129, end: 20050130

REACTIONS (4)
  - DERMATITIS ALLERGIC [None]
  - DYSPNOEA [None]
  - HEADACHE [None]
  - VOMITING [None]
